FAERS Safety Report 13790955 (Version 1)
Quarter: 2017Q3

REPORT INFORMATION
  Report Type: Spontaneous
  Country: US (occurrence: US)
  Receive Date: 20170725
  Receipt Date: 20170725
  Transmission Date: 20171127
  Serious: Yes (Death, Other)
  Sender: FDA-Public Use
  Company Number: US-CELGENEUS-USA-20170705841

PATIENT
  Age: 75 Year
  Sex: Male

DRUGS (8)
  1. VIDAZA [Suspect]
     Active Substance: AZACITIDINE
     Indication: MYELODYSPLASTIC SYNDROME
     Route: 065
  2. METHYLPREDNISOLONE. [Concomitant]
     Active Substance: METHYLPREDNISOLONE
     Dosage: 32 MILLIGRAM
     Route: 065
  3. DECITABINE. [Concomitant]
     Active Substance: DECITABINE
     Indication: PRODUCT USED FOR UNKNOWN INDICATION
     Route: 065
  4. NAPROXEN. [Concomitant]
     Active Substance: NAPROXEN
     Indication: CHONDROCALCINOSIS PYROPHOSPHATE
     Route: 065
  5. COLCHICINE. [Concomitant]
     Active Substance: COLCHICINE
     Indication: PRODUCT USED FOR UNKNOWN INDICATION
     Dosage: .6 MILLIGRAM
     Route: 065
  6. METHYLPREDNISOLONE. [Concomitant]
     Active Substance: METHYLPREDNISOLONE
     Indication: CROWNED DENS SYNDROME
     Dosage: 48 MILLIGRAM
     Route: 065
  7. METHYLPREDNISOLONE. [Concomitant]
     Active Substance: METHYLPREDNISOLONE
     Dosage: 40 MILLIGRAM
     Route: 065
  8. CORTICOSTEROID [Concomitant]
     Active Substance: CORTICOSTEROID NOS
     Indication: JOINT SWELLING
     Route: 065

REACTIONS (7)
  - Death [Fatal]
  - Thrombocytopenia [Unknown]
  - Pneumonia [Unknown]
  - Multiple organ dysfunction syndrome [Unknown]
  - Chondrocalcinosis pyrophosphate [Unknown]
  - Musculoskeletal stiffness [Unknown]
  - Joint swelling [Unknown]
